FAERS Safety Report 8412248-X (Version None)
Quarter: 2012Q2

REPORT INFORMATION
  Report Type: 
  Country: None (occurrence: None)
  Receive Date: 20120605
  Receipt Date: 20120511
  Transmission Date: 20120825
  Serious: No
  Sender: FDA-Public Use
  Company Number: US-AMGEN-USASP2012025528

PATIENT
  Age: 40 Year
  Sex: Female
  Weight: 87.075 kg

DRUGS (2)
  1. ENBREL [Suspect]
     Indication: RHEUMATOID ARTHRITIS
     Dosage: 50 MG, QWK
     Route: 058
     Dates: start: 20120420
  2. TREXALL [Concomitant]
     Dosage: 1 MG, UNK WEEKLY
     Dates: start: 20020101

REACTIONS (2)
  - UPPER RESPIRATORY TRACT INFECTION [None]
  - SINUS CONGESTION [None]
